FAERS Safety Report 8618723-7 (Version None)
Quarter: 2012Q3

REPORT INFORMATION
  Report Type: 
  Country: None (occurrence: None)
  Receive Date: 20120815
  Receipt Date: 20120815
  Transmission Date: 20120928
  Serious: No
  Sender: FDA-Public Use
  Company Number: None

PATIENT
  Sex: Female

DRUGS (1)
  1. FORTEO [Suspect]
     Dosage: 20MCG DAILY SUBQ
     Route: 058
     Dates: start: 20120301, end: 20120813

REACTIONS (4)
  - SWELLING [None]
  - PRURITUS [None]
  - URTICARIA [None]
  - JOINT EFFUSION [None]
